FAERS Safety Report 11389891 (Version 4)
Quarter: 2016Q2

REPORT INFORMATION
  Report Type: Report from Study
  Country: US (occurrence: US)
  Receive Date: 20150818
  Receipt Date: 20160610
  Transmission Date: 20160815
  Serious: Yes (Other)
  Sender: FDA-Public Use
  Company Number: US-ABBVIE-15K-163-1442635-00

PATIENT
  Age: 55 Year
  Sex: Female
  Weight: 97.61 kg

DRUGS (9)
  1. CITRIC ACID [Suspect]
     Active Substance: CITRIC ACID MONOHYDRATE
     Indication: PRODUCT USED FOR UNKNOWN INDICATION
     Route: 065
  2. HUMIRA [Suspect]
     Active Substance: ADALIMUMAB
     Route: 058
     Dates: start: 201509, end: 20160309
  3. VICTOZA [Suspect]
     Active Substance: LIRAGLUTIDE
     Indication: DIABETES MELLITUS
     Route: 048
     Dates: end: 2016
  4. TRICOR [Concomitant]
     Active Substance: FENOFIBRATE
     Indication: BLOOD TRIGLYCERIDES INCREASED
  5. HUMIRA [Suspect]
     Active Substance: ADALIMUMAB
     Indication: PSORIATIC ARTHROPATHY
     Route: 058
     Dates: start: 20150722, end: 201509
  6. HUMIRA [Suspect]
     Active Substance: ADALIMUMAB
     Indication: PSORIASIS
     Route: 058
     Dates: start: 201509, end: 201509
  7. LANTUS [Concomitant]
     Active Substance: INSULIN GLARGINE
     Indication: DIABETES MELLITUS
  8. TOPROL XL [Concomitant]
     Active Substance: METOPROLOL SUCCINATE
     Indication: HYPERTENSION
  9. METHOTREXATE [Concomitant]
     Active Substance: METHOTREXATE
     Indication: PSORIATIC ARTHROPATHY
     Dates: start: 201601

REACTIONS (30)
  - Nausea [Recovered/Resolved]
  - Lip swelling [Recovered/Resolved]
  - Arthralgia [Recovering/Resolving]
  - Chills [Recovered/Resolved]
  - Vertigo [Recovered/Resolved]
  - Allergic oedema [Recovering/Resolving]
  - Burning sensation [Recovered/Resolved]
  - Nausea [Recovered/Resolved]
  - Tremor [Recovered/Resolved]
  - Injection site bruising [Recovered/Resolved]
  - Anal pruritus [Recovered/Resolved]
  - Chills [Recovered/Resolved]
  - Swollen tongue [Recovered/Resolved]
  - Imaging procedure abnormal [Not Recovered/Not Resolved]
  - Choking sensation [Recovered/Resolved]
  - Tremor [Recovered/Resolved]
  - Tremor [Recovered/Resolved]
  - Dysphagia [Recovering/Resolving]
  - Allergic oedema [Recovering/Resolving]
  - Choking sensation [Recovering/Resolving]
  - Choking sensation [Recovered/Resolved]
  - Feeling hot [Recovered/Resolved]
  - Injection site discolouration [Recovered/Resolved]
  - Drug hypersensitivity [Recovering/Resolving]
  - Painful defaecation [Recovered/Resolved]
  - Feeling hot [Recovered/Resolved]
  - Vertigo [Recovered/Resolved]
  - Drug effect incomplete [Not Recovered/Not Resolved]
  - Allergic oedema [Recovered/Resolved]
  - Paraesthesia oral [Recovered/Resolved]

NARRATIVE: CASE EVENT DATE: 2015
